FAERS Safety Report 5334000-4 (Version None)
Quarter: 2007Q2

REPORT INFORMATION
  Report Type: 
  Country: None (occurrence: None)
  Receive Date: 20070524
  Receipt Date: 20070515
  Transmission Date: 20071010
  Serious: Yes (Hospitalization)
  Sender: FDA-Public Use
  Company Number: FR-PFIZER INC-2007038875

PATIENT
  Age: 84 Year
  Sex: Female

DRUGS (15)
  1. AMLOR [Suspect]
     Indication: ESSENTIAL HYPERTENSION
     Dosage: DAILY DOSE:10MG-FREQ:DAILY
     Route: 048
  2. TRAMADOL HCL [Suspect]
     Indication: NEUROPATHY PERIPHERAL
     Dosage: DAILY DOSE:100MG-FREQ:DAILY
     Route: 048
  3. OMEPRAZOLE [Suspect]
     Dosage: DAILY DOSE:20MG-FREQ:DAILY
     Route: 048
  4. OLMIFON [Suspect]
     Dosage: TEXT:1 DOSE FORM-FREQ:DAILY
     Route: 048
  5. LAROXYL [Suspect]
     Indication: NEUROPATHY PERIPHERAL
     Dosage: TEXT:10 DOSE FORMS-FREQ:DAILY
     Route: 048
     Dates: start: 20070106, end: 20070131
  6. COLCHIMAX [Suspect]
     Dosage: TEXT:1 DOSE FORM-FREQ:DAILY
     Route: 048
  7. CALCIDIA [Concomitant]
     Dosage: TEXT:2 DF-FREQ:DAILY
  8. ELISOR [Concomitant]
     Dosage: TEXT:1 DF-FREQ:DAILY
  9. INSUMAN BASAL [Concomitant]
     Dosage: TEXT:10 UNITS-FREQ:IN THE MORNING
  10. KAYEXALATE [Concomitant]
     Dosage: TEXT:1 DF-FREQ:DAILY
  11. LASIX [Concomitant]
     Dosage: TEXT:1 DF-FREQ:DAILY
  12. PLAVIX [Concomitant]
     Dosage: TEXT:1 DF DAILY
  13. TIMOPTIC [Concomitant]
  14. UN-ALFA [Concomitant]
     Dosage: TEXT:1 DF-FREQ:DAILY
  15. EMLA [Concomitant]
     Dosage: TEXT:2 DF-FREQ:ON DAY OF HEMODIALYSIS

REACTIONS (3)
  - CONFUSIONAL STATE [None]
  - FALL [None]
  - MALAISE [None]
